FAERS Safety Report 7139594-4 (Version None)
Quarter: 2010Q4

REPORT INFORMATION
  Report Type: 
  Country: None (occurrence: None)
  Receive Date: 20101206
  Receipt Date: 20101203
  Transmission Date: 20110411
  Serious: Yes (Death, Other)
  Sender: FDA-Public Use
  Company Number: CH-ABBOTT-10P-151-0689281-00

PATIENT
  Age: 50 Year
  Sex: Male

DRUGS (4)
  1. HUMIRA [Suspect]
     Indication: RHEUMATOID ARTHRITIS
  2. METHOTREXATE [Suspect]
     Indication: RHEUMATOID ARTHRITIS
     Dates: start: 20080101
  3. METHOTREXATE [Suspect]
     Dates: end: 20080101
  4. TAMIFLU [Concomitant]
     Indication: INFLUENZA
     Dosage: PATIENT REC'D 1 PACK. UNSURE IF TOOK MED.
     Dates: start: 20090401

REACTIONS (4)
  - COLON ADENOMA [None]
  - GLIOBLASTOMA [None]
  - INTRACRANIAL PRESSURE INCREASED [None]
  - VOCAL CORD ATROPHY [None]
